FAERS Safety Report 6432299-4 (Version None)
Quarter: 2009Q4

REPORT INFORMATION
  Report Type: 
  Country: None (occurrence: None)
  Receive Date: 20091109
  Receipt Date: 20091028
  Transmission Date: 20100525
  Serious: Yes (Hospitalization, Other)
  Sender: FDA-Public Use
  Company Number: JP-PFIZER INC-2009233851

PATIENT
  Age: 67 Year
  Sex: Male
  Weight: 42 kg

DRUGS (3)
  1. SUNITINIB MALATE [Suspect]
     Indication: RENAL CELL CARCINOMA
     Dosage: 50 MG, 1X/DAY
     Route: 048
     Dates: start: 20090331, end: 20090426
  2. NORVASC [Concomitant]
     Dosage: UNK
     Route: 048
  3. CARDENALIN [Concomitant]
     Dosage: UNK
     Route: 048

REACTIONS (9)
  - ANAEMIA [None]
  - ASCITES [None]
  - GINGIVITIS [None]
  - HEPATIC FUNCTION ABNORMAL [None]
  - HYPERTENSION [None]
  - HYPOPROTEINAEMIA [None]
  - PERICARDIAL EFFUSION [None]
  - PLATELET COUNT DECREASED [None]
  - PLEURAL EFFUSION [None]
